FAERS Safety Report 23592575 (Version 3)
Quarter: 2025Q2

REPORT INFORMATION
  Report Type: Report from Study
  Country: US (occurrence: US)
  Receive Date: 20240304
  Receipt Date: 20250617
  Transmission Date: 20250717
  Serious: Yes (Other)
  Sender: GILEAD
  Company Number: US-GILEAD-2024-0663838

PATIENT
  Age: 25 Year
  Sex: Female

DRUGS (2)
  1. BICTEGRAVIR\EMTRICITABINE\TENOFOVIR ALAFENAMIDE [Suspect]
     Active Substance: BICTEGRAVIR\EMTRICITABINE\TENOFOVIR ALAFENAMIDE
     Indication: HIV infection
     Dosage: 1 DOSAGE FORM, QD
     Route: 048
     Dates: start: 20220608
  2. METHAMPHETAMINE [Suspect]
     Active Substance: METHAMPHETAMINE
     Indication: HIV infection
     Route: 065

REACTIONS (2)
  - Abortion spontaneous [Recovered/Resolved]
  - Maternal exposure during pregnancy [Recovered/Resolved]
